FAERS Safety Report 4563670-3 (Version None)
Quarter: 2005Q1

REPORT INFORMATION
  Report Type: 
  Country: None (occurrence: None)
  Receive Date: 20050121
  Receipt Date: 20050111
  Transmission Date: 20050727
  Serious: Yes (Hospitalization, Other)
  Sender: FDA-Public Use
  Company Number: HQWYE529611JAN05

PATIENT
  Age: 92 Year
  Sex: Male

DRUGS (7)
  1. CORDARONE [Suspect]
     Dosage: 200 MG 1X PER 1 DAY ORAL
     Route: 048
     Dates: start: 20041126, end: 20041202
  2. ATARAX [Suspect]
     Dosage: 25 MG 1X PER 1 DAY ORAL
     Route: 048
     Dates: start: 20041116
  3. PAROXETINE HCL [Suspect]
     Dosage: 10 MG 1X PER 1 DAY ORAL
     Route: 048
     Dates: start: 20041126, end: 20041201
  4. KARDEGIC                       (ACETYLSALICYLATE LYSINE,) [Suspect]
     Dosage: 160 MG 1X PER 1 DAY ORAL
     Route: 048
     Dates: start: 20041116, end: 20041202
  5. LEVOTHYROXINE SODIUM [Suspect]
     Dates: start: 20041126
  6. TAHOR                      (ATORVASTATIN,) [Suspect]
     Dosage: 40 MG 1X PER 1 DAY ORAL
     Route: 048
  7. ALLOPURINOL [Suspect]
     Dosage: 100 MG 1X PER 1 DAY ORAL
     Route: 048
     Dates: start: 20041116

REACTIONS (3)
  - PRURITUS [None]
  - RASH ERYTHEMATOUS [None]
  - RASH MACULO-PAPULAR [None]
